FAERS Safety Report 13143256 (Version 1)
Quarter: 2017Q1

REPORT INFORMATION
  Report Type: Spontaneous
  Country: US (occurrence: US)
  Receive Date: 20170123
  Receipt Date: 20170123
  Transmission Date: 20170428
  Serious: No
  Sender: FDA-Public Use
  Company Number: US-ASTRAZENECA-2017SE04210

PATIENT
  Age: 22344 Day
  Sex: Male

DRUGS (18)
  1. ASPIRIN. [Suspect]
     Active Substance: ASPIRIN
     Route: 065
  2. LANTUS PEN [Concomitant]
     Dosage: 32 UNITES PER DAY
  3. LEXAPRO [Concomitant]
     Active Substance: ESCITALOPRAM OXALATE
  4. ALTACE [Concomitant]
     Active Substance: RAMIPRIL
     Indication: HYPERTENSION
  5. LIPITOR [Concomitant]
     Active Substance: ATORVASTATIN CALCIUM
     Indication: BLOOD CHOLESTEROL ABNORMAL
  6. POTASSIUM [Concomitant]
     Active Substance: POTASSIUM
  7. XELJANZ [Concomitant]
     Active Substance: TOFACITINIB CITRATE
  8. LYRICA [Concomitant]
     Active Substance: PREGABALIN
     Indication: PAIN
  9. NORVASC [Concomitant]
     Active Substance: AMLODIPINE BESYLATE
     Indication: BLOOD PRESSURE MEASUREMENT
  10. NITRO SPRAY [Concomitant]
     Indication: ANGINA PECTORIS
     Dosage: AS NEEDED
  11. FENTANYL TRANSDERMAL SYSTEM [Concomitant]
     Active Substance: FENTANYL
     Indication: PAIN
     Dosage: 75 MG EVERY 72 HOURS
  12. HYDROCODON [Concomitant]
     Active Substance: HYDROCODONE
     Indication: PAIN
     Dosage: 10-325 TWICE A DAY (AS NEEDED)
  13. BYETTA [Suspect]
     Active Substance: EXENATIDE
     Route: 065
  14. RANEXA [Concomitant]
     Active Substance: RANOLAZINE
     Indication: ANGINA PECTORIS
  15. VITAMIN B12 [Concomitant]
     Active Substance: CYANOCOBALAMIN
  16. PLAVIX [Concomitant]
     Active Substance: CLOPIDOGREL BISULFATE
     Indication: ANTICOAGULANT THERAPY
  17. COREG [Concomitant]
     Active Substance: CARVEDILOL
     Indication: HYPERTENSION
  18. FISH OIL [Concomitant]
     Active Substance: FISH OIL
     Dosage: 1000 MG TWICE A DAY (AT LUNCH, AT NIGHT)

REACTIONS (2)
  - Drug hypersensitivity [Unknown]
  - Adverse drug reaction [Unknown]

NARRATIVE: CASE EVENT DATE: 20161223
